FAERS Safety Report 6859128-9 (Version None)
Quarter: 2010Q3

REPORT INFORMATION
  Report Type: 
  Country: None (occurrence: None)
  Receive Date: 20100719
  Receipt Date: 20080222
  Transmission Date: 20110219
  Serious: No
  Sender: FDA-Public Use
  Company Number: US-PFIZER INC-2008018353

PATIENT
  Sex: Female

DRUGS (4)
  1. CHANTIX [Suspect]
     Indication: SMOKING CESSATION THERAPY
     Dates: start: 20071018
  2. NEXIUM [Concomitant]
  3. ESTROGENS [Concomitant]
  4. PERCOCET [Concomitant]
     Dates: start: 20050101

REACTIONS (9)
  - DECREASED APPETITE [None]
  - DEPRESSION [None]
  - FEELING ABNORMAL [None]
  - IRRITABILITY [None]
  - MALAISE [None]
  - MOOD SWINGS [None]
  - NAUSEA [None]
  - RETCHING [None]
  - WEIGHT DECREASED [None]
